FAERS Safety Report 25823547 (Version 1)
Quarter: 2025Q3

REPORT INFORMATION
  Report Type: Spontaneous
  Country: US (occurrence: None)
  Receive Date: 20250918
  Receipt Date: 20250918
  Transmission Date: 20251020
  Serious: Yes (Hospitalization)
  Sender: FDA-CTU
  Company Number: None

PATIENT
  Sex: Female

DRUGS (7)
  1. VYNDAMAX [Suspect]
     Active Substance: TAFAMIDIS
     Indication: Amyloidosis
     Dosage: OTHER QUANTITY : TAKE 1 CAPSULE;?FREQUENCY : DAILY;?
     Route: 048
     Dates: start: 20231115
  2. ASPIRIN [Concomitant]
     Active Substance: ASPIRIN
  3. DICLOFENAC [Concomitant]
     Active Substance: DICLOFENAC
  4. TORSEMIDE [Concomitant]
     Active Substance: TORSEMIDE
  5. TYLENOL [Concomitant]
     Active Substance: ACETAMINOPHEN
  6. VIT B COMPLX [Concomitant]
  7. WARFARIN [Concomitant]
     Active Substance: WARFARIN

REACTIONS (5)
  - Pericardial effusion [None]
  - Pericardial haemorrhage [None]
  - Renal disorder [None]
  - Therapy interrupted [None]
  - Generalised oedema [None]
